FAERS Safety Report 8849768 (Version 2)
Quarter: 2013Q1

REPORT INFORMATION
  Report Type: Spontaneous
  Country: FR (occurrence: FR)
  Receive Date: 20121019
  Receipt Date: 20130125
  Transmission Date: 20140127
  Serious: Yes (Other)
  Sender: FDA-Public Use
  Company Number: PHHY2012FR093490

PATIENT
  Age: 74 Year
  Sex: Female

DRUGS (5)
  1. ACLASTA [Suspect]
     Indication: OSTEOPOROSIS
     Dosage: UNK UKN, UNK
     Route: 042
  2. ACLASTA [Suspect]
     Dosage: UNK UKN, UNK
     Route: 042
     Dates: start: 20121011
  3. ZANIDIP [Concomitant]
     Indication: HYPERTENSION
     Dosage: 20 MG, UNK
  4. RAUBASINE [Concomitant]
     Route: 048
  5. DAFALGAN [Concomitant]
     Dosage: 1 G, UNK

REACTIONS (7)
  - Metamorphopsia [Unknown]
  - Dyslexia [Unknown]
  - Dysgraphia [Unknown]
  - Vision blurred [Unknown]
  - Visual acuity reduced [Not Recovered/Not Resolved]
  - Speech disorder [Unknown]
  - Headache [Unknown]
